FAERS Safety Report 9319950 (Version 2)
Quarter: 2013Q2

REPORT INFORMATION
  Report Type: Spontaneous
  Country: JP (occurrence: JP)
  Receive Date: 20130530
  Receipt Date: 20130607
  Transmission Date: 20140414
  Serious: Yes (Other)
  Sender: FDA-Public Use
  Company Number: JP-PFIZER INC-2013161335

PATIENT
  Age: 82 Year
  Sex: Male

DRUGS (4)
  1. ZYVOX [Suspect]
     Dosage: UNK
     Route: 041
     Dates: end: 20130520
  2. ZYVOX [Suspect]
     Dosage: 1200 MG/DAY
     Route: 048
     Dates: end: 20130520
  3. CLINDAMYCIN HCL [Suspect]
     Dosage: UNK
     Route: 048
  4. RIFAMPICIN [Suspect]
     Route: 048

REACTIONS (1)
  - Hypoacusis [Not Recovered/Not Resolved]
